FAERS Safety Report 8334110-3 (Version None)
Quarter: 2012Q2

REPORT INFORMATION
  Report Type: 
  Country: None (occurrence: None)
  Receive Date: 20120503
  Receipt Date: 20110226
  Transmission Date: 20120825
  Serious: No
  Sender: FDA-Public Use
  Company Number: US-TEVA-2011000936

PATIENT
  Sex: Female
  Weight: 68.1 kg

DRUGS (4)
  1. NUVIGIL [Suspect]
     Indication: FATIGUE
     Route: 048
     Dates: start: 20110101, end: 20110101
  2. PROPRANOLOL [Concomitant]
  3. CITALOPRAM HYDROBROMIDE [Concomitant]
  4. ZOLPIDEM [Concomitant]

REACTIONS (2)
  - DRUG INEFFECTIVE FOR UNAPPROVED INDICATION [None]
  - NERVOUSNESS [None]
